FAERS Safety Report 4268098-1 (Version None)
Quarter: 2004Q1

REPORT INFORMATION
  Report Type: 
  Country: None (occurrence: None)
  Receive Date: 20040109
  Receipt Date: 20040109
  Transmission Date: 20041129
  Serious: Yes (Hospitalization)
  Sender: FDA-Public Use
  Company Number: None

PATIENT
  Age: 52 Year
  Sex: Female
  Weight: 56.6996 kg

DRUGS (2)
  1. LUPRON DEPOT [Suspect]
     Indication: UTERINE LEIOMYOMA
     Dosage: 3.5 MG 2ND INJECT INTRAMUSCULAR
     Route: 030
     Dates: start: 20031021, end: 20031120
  2. LUPRON DEPOT [Suspect]
     Indication: UTERINE LEIOMYOMA
     Dosage: 3.5 MG 2ND INJECT INTRAMUSCULAR
     Route: 030
     Dates: start: 20031120, end: 20031120

REACTIONS (6)
  - AMNESIA [None]
  - ANXIETY [None]
  - CONFUSIONAL STATE [None]
  - DEPRESSION [None]
  - MOOD ALTERED [None]
  - VOMITING [None]
